FAERS Safety Report 10975258 (Version 4)
Quarter: 2018Q2

REPORT INFORMATION
  Report Type: Report from Study
  Country: US (occurrence: US)
  Receive Date: 20150401
  Receipt Date: 20180420
  Transmission Date: 20180711
  Serious: Yes (Hospitalization, Other)
  Sender: FDA-Public Use
  Company Number: US-AMGEN-USASP2015030300

PATIENT
  Age: 64 Year
  Sex: Female

DRUGS (4)
  1. ENBREL [Suspect]
     Active Substance: ETANERCEPT
     Indication: RHEUMATOID ARTHRITIS
     Dosage: 50 MG, QWK ON SUNDAY
     Route: 065
  2. MEDROL [Concomitant]
     Active Substance: METHYLPREDNISOLONE
     Dosage: UNK
  3. ENBREL [Suspect]
     Active Substance: ETANERCEPT
     Dosage: 50 MG, QWK
     Route: 065
  4. VITAMIN C [Concomitant]
     Active Substance: ASCORBIC ACID
     Dosage: UNK

REACTIONS (21)
  - Periodontal disease [Unknown]
  - Weight decreased [Unknown]
  - Herpes zoster [Unknown]
  - Hypoaesthesia [Unknown]
  - Pain in extremity [Unknown]
  - Staphylococcal infection [Recovered/Resolved]
  - Neuralgia [Unknown]
  - Gingival disorder [Unknown]
  - Infection [Unknown]
  - Musculoskeletal disorder [Not Recovered/Not Resolved]
  - Peroneal nerve palsy [Unknown]
  - Bronchitis [Recovering/Resolving]
  - Platelet count increased [Unknown]
  - White blood cell count abnormal [Recovered/Resolved]
  - Spinal fusion surgery [Unknown]
  - Medical device site infection [Unknown]
  - Sinusitis [Unknown]
  - Tooth infection [Unknown]
  - Pancreatic failure [Unknown]
  - Upper respiratory tract infection [Unknown]
  - Joint range of motion decreased [Not Recovered/Not Resolved]

NARRATIVE: CASE EVENT DATE: 201507
